FAERS Safety Report 8423532-8 (Version None)
Quarter: 2012Q2

REPORT INFORMATION
  Report Type: 
  Country: None (occurrence: None)
  Receive Date: 20120608
  Receipt Date: 20120528
  Transmission Date: 20120825
  Serious: Yes (Death, Life-Threatening, Other)
  Sender: FDA-Public Use
  Company Number: JP-ROCHE-1057932

PATIENT
  Sex: Female
  Weight: 33 kg

DRUGS (34)
  1. PREDNISOLONE [Suspect]
     Route: 048
     Dates: start: 20120220, end: 20120226
  2. TACROLIMUS [Suspect]
     Indication: JUVENILE ARTHRITIS
     Route: 048
     Dates: start: 20120116, end: 20120120
  3. CYCLOSPORINE [Suspect]
     Indication: JUVENILE ARTHRITIS
     Route: 041
     Dates: start: 20111230, end: 20120105
  4. CLOBAZAM [Concomitant]
     Indication: EPILEPSY
     Dosage: DRUG REPROTED AS MYSTAN
     Route: 048
     Dates: start: 20090306, end: 20120301
  5. ALFAROL [Concomitant]
     Indication: OSTEOPOROSIS
     Route: 048
     Dates: start: 20080324, end: 20120301
  6. ACTONEL [Concomitant]
     Indication: OSTEOPOROSIS
     Route: 048
     Dates: start: 20090313, end: 20120301
  7. ACTEMRA [Suspect]
     Route: 041
     Dates: start: 20120104, end: 20120126
  8. ACTEMRA [Suspect]
     Route: 041
     Dates: start: 20120210, end: 20120224
  9. PREDNISOLONE [Suspect]
     Route: 048
     Dates: start: 20120102, end: 20120105
  10. METHYLPREDNISOLONE SODIUM SUCCINATE [Suspect]
     Route: 041
     Dates: start: 20120227, end: 20120229
  11. ENALAPRIL MALEATE [Concomitant]
     Indication: HYPERTENSION
     Route: 048
     Dates: start: 20080421, end: 20120301
  12. ACTEMRA [Suspect]
     Indication: JUVENILE ARTHRITIS
     Route: 041
     Dates: start: 20090421, end: 20111228
  13. PREDNISOLONE [Suspect]
     Route: 048
     Dates: start: 20120121, end: 20120122
  14. PREDNISOLONE [Suspect]
     Route: 048
     Dates: start: 20120213, end: 20120219
  15. TACROLIMUS [Suspect]
     Route: 048
     Dates: start: 20120123, end: 20120219
  16. DEPAKENE [Concomitant]
     Indication: EPILEPSY
     Route: 048
     Dates: start: 20081212, end: 20120301
  17. METHOTREXATE [Concomitant]
     Indication: JUVENILE ARTHRITIS
     Route: 048
     Dates: start: 20110406, end: 20120301
  18. FOLIAMIN [Concomitant]
     Indication: PROPHYLAXIS
     Route: 048
     Dates: start: 20110406, end: 20120301
  19. ACTEMRA [Suspect]
     Route: 041
     Dates: start: 20090909
  20. PREDNISOLONE [Suspect]
     Route: 048
     Dates: start: 20120116, end: 20120120
  21. DEXAMETHASONE [Suspect]
     Indication: JUVENILE ARTHRITIS
     Route: 042
     Dates: start: 20120104, end: 20120104
  22. IBRUPROFEN [Concomitant]
     Indication: JUVENILE ARTHRITIS
     Route: 048
     Dates: start: 20080327, end: 20120301
  23. ADALAT CC [Concomitant]
     Indication: HYPERTENSION
     Route: 048
     Dates: start: 20080421, end: 20120301
  24. PREDNISOLONE [Suspect]
     Indication: JUVENILE ARTHRITIS
     Route: 048
     Dates: start: 20111228, end: 20111229
  25. PREDNISOLONE [Suspect]
     Route: 048
     Dates: start: 20120109, end: 20120112
  26. CYCLOSPORINE [Suspect]
     Indication: HISTIOCYTOSIS HAEMATOPHAGIC
     Route: 041
     Dates: start: 20120227, end: 20120311
  27. ACTEMRA [Suspect]
     Route: 041
     Dates: start: 20090728, end: 20090826
  28. METHYLPREDNISOLONE SODIUM SUCCINATE [Suspect]
     Indication: JUVENILE ARTHRITIS
     Route: 041
     Dates: start: 20111230, end: 20120101
  29. COLCHICINE [Concomitant]
     Indication: JUVENILE ARTHRITIS
     Route: 048
     Dates: start: 20120116, end: 20120122
  30. PREDNISOLONE [Suspect]
     Route: 048
     Dates: start: 20120123, end: 20120205
  31. PREDNISOLONE [Suspect]
     Route: 048
     Dates: start: 20120206, end: 20120212
  32. METHYLPREDNISOLONE SODIUM SUCCINATE [Suspect]
     Route: 041
     Dates: start: 20120106, end: 20120108
  33. METHYLPREDNISOLONE SODIUM SUCCINATE [Suspect]
     Route: 041
     Dates: start: 20120113, end: 20120115
  34. COLCHICINE [Concomitant]
     Route: 048
     Dates: start: 20120123, end: 20120226

REACTIONS (10)
  - SHOCK HAEMORRHAGIC [None]
  - HISTIOCYTOSIS HAEMATOPHAGIC [None]
  - ORAL HERPES [None]
  - PNEUMOTHORAX [None]
  - DEVICE RELATED INFECTION [None]
  - JUVENILE ARTHRITIS [None]
  - HAEMOTHORAX [None]
  - GASTRIC ULCER HAEMORRHAGE [None]
  - PNEUMOCYSTIS JIROVECI PNEUMONIA [None]
  - STAPHYLOCOCCAL SEPSIS [None]
